FAERS Safety Report 6922836-5 (Version None)
Quarter: 2010Q3

REPORT INFORMATION
  Report Type: 
  Country: None (occurrence: None)
  Receive Date: 20100813
  Receipt Date: 20100802
  Transmission Date: 20110219
  Serious: Yes (Death, Other)
  Sender: FDA-Public Use
  Company Number: US-PFIZER INC-2010065448

PATIENT
  Sex: Male

DRUGS (2)
  1. SUTENT [Suspect]
     Indication: RENAL CANCER
     Dosage: 12.5 MG, 3X/DAY, 4-2 CYCLE
     Route: 048
     Dates: start: 20100415
  2. GLEEVEC [Concomitant]
     Dosage: UNK
     Dates: start: 20090401, end: 20100415

REACTIONS (2)
  - ANAEMIA [None]
  - DEATH [None]
